FAERS Safety Report 22296853 (Version 2)
Quarter: 2023Q2

REPORT INFORMATION
  Report Type: Spontaneous
  Country: US (occurrence: US)
  Receive Date: 20230509
  Receipt Date: 20230531
  Transmission Date: 20230722
  Serious: Yes (Hospitalization, Other)
  Sender: FDA-Public Use
  Company Number: US-BRISTOL-MYERS SQUIBB COMPANY-2023-062884

PATIENT
  Age: 67 Year
  Sex: Male

DRUGS (2)
  1. POMALYST [Suspect]
     Active Substance: POMALIDOMIDE
     Indication: Plasma cell myeloma
     Route: 048
     Dates: start: 202303
  2. POMALYST [Suspect]
     Active Substance: POMALIDOMIDE
     Dosage: FREQUENCY: TAKE ONE CAPSULE DAILY FOR 21 DAYS EVERY 28 DAYS
     Route: 048
     Dates: start: 20230301

REACTIONS (5)
  - White blood cell count decreased [Recovering/Resolving]
  - Heart rate decreased [Unknown]
  - Pneumonia [Unknown]
  - Heart rate increased [Unknown]
  - Arrhythmia [Unknown]

NARRATIVE: CASE EVENT DATE: 20230523
